FAERS Safety Report 20732875 (Version 1)
Quarter: 2022Q2

REPORT INFORMATION
  Report Type: Spontaneous
  Country: CN (occurrence: CN)
  Receive Date: 20220420
  Receipt Date: 20220420
  Transmission Date: 20220720
  Serious: Yes (Other)
  Sender: FDA-Public Use
  Company Number: CN-BAXTER-2022BAX008622

PATIENT
  Age: 59 Year
  Sex: Male
  Weight: 54 kg

DRUGS (6)
  1. CYCLOPHOSPHAMIDE [Suspect]
     Active Substance: CYCLOPHOSPHAMIDE
     Indication: Lung neoplasm malignant
     Dosage: CYCLOPHOSPHAMIDE FOR INJECTION (800 MG) + 0.9% SODIUM CHLORIDE INJECTION (500 ML)
     Route: 041
     Dates: start: 20220318, end: 20220318
  2. SODIUM CHLORIDE [Suspect]
     Active Substance: SODIUM CHLORIDE
     Indication: Medication dilution
     Dosage: CYCLOPHOSPHAMIDE FOR INJECTION (800 MG) + 0.9% SODIUM CHLORIDE INJECTION (500 ML)
     Route: 041
     Dates: start: 20220318, end: 20220318
  3. SODIUM CHLORIDE [Suspect]
     Active Substance: SODIUM CHLORIDE
     Dosage: CISPLATIN INJECTION (110 MG) + 0.9% SODIUM CHLORIDE INJECTION (500 ML)
     Route: 041
     Dates: start: 20220318, end: 20220318
  4. DEXTROSE [Suspect]
     Active Substance: DEXTROSE
     Indication: Medication dilution
     Dosage: EPIRUBICIN HYDROCHLORIDE FOR INJECTION (110 MG) + 5% GLUCOSE INJECTION (250 ML)
     Route: 041
     Dates: start: 20220318, end: 20220318
  5. CISPLATIN [Suspect]
     Active Substance: CISPLATIN
     Indication: Lung neoplasm malignant
     Dosage: CISPLATIN INJECTION (110 MG) + 0.9% SODIUM CHLORIDE INJECTION (500 ML)
     Route: 041
     Dates: start: 20220318, end: 20220318
  6. EPIRUBICIN HYDROCHLORIDE [Suspect]
     Active Substance: EPIRUBICIN HYDROCHLORIDE
     Indication: Lung neoplasm malignant
     Dosage: EPIRUBICIN HYDROCHLORIDE FOR INJECTION (110 MG) + 5% GLUCOSE INJECTION (250 ML)
     Route: 041
     Dates: start: 20220318, end: 20220318

REACTIONS (1)
  - Neutrophil count decreased [Recovering/Resolving]

NARRATIVE: CASE EVENT DATE: 20220330
